FAERS Safety Report 18467264 (Version 1)
Quarter: 2020Q4

REPORT INFORMATION
  Report Type: Spontaneous
  Country: US (occurrence: US)
  Receive Date: 20201104
  Receipt Date: 20201104
  Transmission Date: 20210114
  Serious: No
  Sender: FDA-Public Use
  Company Number: None

PATIENT
  Age: 71 Year
  Sex: Male

DRUGS (1)
  1. PIOGLITAZONE (PIOGLITAZONE HCL 30MG TAB) [Suspect]
     Active Substance: PIOGLITAZONE HYDROCHLORIDE
     Indication: CARDIAC FAILURE CONGESTIVE
     Route: 048
     Dates: start: 20200709, end: 20200824

REACTIONS (1)
  - Oedema [None]

NARRATIVE: CASE EVENT DATE: 20200824
